FAERS Safety Report 9938560 (Version 1)
Quarter: 2014Q1

REPORT INFORMATION
  Report Type: Spontaneous
  Country: US (occurrence: US)
  Receive Date: 20140303
  Receipt Date: 20140303
  Transmission Date: 20141002
  Serious: Yes (Hospitalization)
  Sender: FDA-Public Use
  Company Number: US-JNJFOC-20140212758

PATIENT
  Age: 64 Year
  Sex: Male

DRUGS (8)
  1. DURAGESIC [Suspect]
     Indication: PAIN
     Route: 062
  2. FENTANYL TRANSDERMAL SYSTEM [Suspect]
     Indication: PAIN
     Route: 062
  3. DITROPAN [Suspect]
     Indication: URINARY INCONTINENCE
     Route: 048
     Dates: start: 2011
  4. OXYBUTYNIN [Suspect]
     Indication: URINARY INCONTINENCE
     Route: 048
     Dates: start: 2011
  5. PERCOCET [Concomitant]
     Indication: PAIN
     Route: 048
  6. BUTRANS [Concomitant]
     Indication: PAIN
     Route: 062
  7. NORCO [Concomitant]
     Indication: PAIN
     Route: 048
  8. LYRICA [Concomitant]
     Indication: PAIN
     Route: 048

REACTIONS (1)
  - Spinal fusion surgery [Unknown]
